FAERS Safety Report 7399661-7 (Version None)
Quarter: 2011Q2

REPORT INFORMATION
  Report Type: 
  Country: None (occurrence: None)
  Receive Date: 20110407
  Receipt Date: 20100405
  Transmission Date: 20111010
  Serious: No
  Sender: FDA-Public Use
  Company Number: US-KINGPHARMUSA00001-K201000400

PATIENT
  Age: 61 Year
  Sex: Female

DRUGS (7)
  1. CRESTOR [Concomitant]
     Dosage: 10 MG, QOD
     Route: 048
  2. AMBIEN [Concomitant]
     Indication: INSOMNIA
     Dosage: 1/2 PILL
     Route: 048
  3. MULTI-VITAMINS [Concomitant]
     Dosage: UNK
  4. FISH OIL [Concomitant]
     Dosage: UNK
  5. SKELAXIN [Suspect]
     Indication: MUSCLE SPASMS
     Dosage: 800 MG, PRN
     Route: 048
     Dates: start: 20080101, end: 20100320
  6. CRESTOR [Concomitant]
     Indication: BLOOD CHOLESTEROL INCREASED
     Dosage: 5 MG, QD
     Route: 048
  7. SKELAXIN [Suspect]
     Dosage: 800 MG, SINGLE
     Route: 048
     Dates: start: 20100323, end: 20100323

REACTIONS (3)
  - THIRST [None]
  - NAUSEA [None]
  - HEADACHE [None]
